FAERS Safety Report 8005239-4 (Version None)
Quarter: 2011Q4

REPORT INFORMATION
  Report Type: 
  Country: None (occurrence: None)
  Receive Date: 20111223
  Receipt Date: 20111220
  Transmission Date: 20120403
  Serious: Yes (Death, Hospitalization)
  Sender: FDA-Public Use
  Company Number: PHEH2011US010802

PATIENT
  Sex: Female

DRUGS (7)
  1. EXJADE [Suspect]
     Dosage: 750 MG, DAILY
     Route: 048
     Dates: start: 20110914
  2. PROPRANOLOL [Concomitant]
     Dosage: 60 MG DAILY
     Route: 048
     Dates: start: 20101231
  3. GLIPIZIDE [Concomitant]
     Dosage: 5 MG
     Dates: start: 20101231
  4. EXJADE [Suspect]
     Indication: PANCYTOPENIA
     Dosage: 625 MG, DAILY
     Route: 048
     Dates: start: 20101130, end: 20110209
  5. OMEPRAZOLE [Concomitant]
     Dosage: 20 MG
     Dates: start: 20101221
  6. LEVOTHYROXINE SODIUM [Concomitant]
     Dosage: 25 MG
     Route: 048
     Dates: start: 20101231
  7. EXJADE [Suspect]
     Dosage: 625 MG, DAILY
     Route: 048
     Dates: start: 20110209, end: 20110729

REACTIONS (2)
  - DEATH [None]
  - INFECTIOUS PERITONITIS [None]
